FAERS Safety Report 14769374 (Version 4)
Quarter: 2018Q2

REPORT INFORMATION
  Report Type: Report from Study
  Country: US (occurrence: US)
  Receive Date: 20180417
  Receipt Date: 20180621
  Transmission Date: 20180711
  Serious: Yes (Hospitalization, Other)
  Sender: FDA-Public Use
  Company Number: US-GILEAD-2018-0325772

PATIENT
  Age: 57 Year
  Sex: Male

DRUGS (7)
  1. CHLORHEXIDINE [Suspect]
     Active Substance: CHLORHEXIDINE
     Indication: PRODUCT USED FOR UNKNOWN INDICATION
     Dosage: UNK
     Route: 065
  2. UPTRAVI [Concomitant]
     Active Substance: SELEXIPAG
     Dosage: UNK
  3. AMBRISENTAN [Suspect]
     Active Substance: AMBRISENTAN
     Indication: PRODUCT USED FOR UNKNOWN INDICATION
     Dosage: 5 MG, QD
     Route: 065
     Dates: start: 20180306
  4. ADCIRCA [Concomitant]
     Active Substance: TADALAFIL
  5. REMODULIN [Suspect]
     Active Substance: TREPROSTINIL
     Indication: PRODUCT USED FOR UNKNOWN INDICATION
     Dosage: 19 NG/KG/MIN
     Route: 065
  6. REMODULIN [Suspect]
     Active Substance: TREPROSTINIL
     Dosage: 18 NG/KG/MIN
     Route: 065
  7. AMBRISENTAN [Suspect]
     Active Substance: AMBRISENTAN
     Dosage: 10 MG, QD
     Route: 065
     Dates: start: 20180306

REACTIONS (24)
  - Abdominal distension [Not Recovered/Not Resolved]
  - Blood creatinine increased [Not Recovered/Not Resolved]
  - Myalgia [Not Recovered/Not Resolved]
  - Device related infection [Unknown]
  - Pain in extremity [Not Recovered/Not Resolved]
  - Burning sensation [Not Recovered/Not Resolved]
  - Dyspnoea [Not Recovered/Not Resolved]
  - Nausea [Not Recovered/Not Resolved]
  - Gait disturbance [Not Recovered/Not Resolved]
  - Malaise [Not Recovered/Not Resolved]
  - Restless legs syndrome [Not Recovered/Not Resolved]
  - Oxygen saturation decreased [Not Recovered/Not Resolved]
  - Injection site pruritus [Not Recovered/Not Resolved]
  - Infusion site rash [Unknown]
  - Dyspnoea exertional [Not Recovered/Not Resolved]
  - Fatigue [Not Recovered/Not Resolved]
  - Infusion site discharge [Unknown]
  - Insomnia [Not Recovered/Not Resolved]
  - Confusional state [Not Recovered/Not Resolved]
  - Injection site extravasation [Not Recovered/Not Resolved]
  - Diarrhoea [Unknown]
  - Oedema [Not Recovered/Not Resolved]
  - Anxiety [Not Recovered/Not Resolved]
  - Somnolence [Not Recovered/Not Resolved]
